FAERS Safety Report 6706493-9 (Version None)
Quarter: 2010Q2

REPORT INFORMATION
  Report Type: 
  Country: None (occurrence: None)
  Receive Date: 20100503
  Receipt Date: 20100426
  Transmission Date: 20101027
  Serious: Yes (Other)
  Sender: FDA-Public Use
  Company Number: PHHY2010FR14595

PATIENT
  Sex: Female
  Weight: 58 kg

DRUGS (6)
  1. VOLTAREN [Suspect]
     Indication: BACK PAIN
     Dosage: 100 MG, QD
     Route: 048
     Dates: start: 20100115, end: 20100209
  2. CIBACALCINE [Suspect]
     Indication: OSTEOPOROSIS
     Dosage: 0.5 MG, UNK
     Dates: start: 20100213, end: 20100222
  3. CIBACALCINE [Suspect]
     Dosage: UNK
     Dates: start: 20100318
  4. ZECLAR [Suspect]
     Indication: RESPIRATORY TRACT INFECTION
     Dosage: UNK
  5. TOPALGIC [Concomitant]
     Indication: BACK PAIN
     Dosage: 200 MG, BID
     Dates: start: 20100213, end: 20100222
  6. PROPOFAN [Concomitant]
     Indication: BACK PAIN
     Dosage: 2 TO 6 TABLETS DAILY
     Dates: start: 20100213, end: 20100413

REACTIONS (3)
  - DIARRHOEA [None]
  - NAUSEA [None]
  - PSEUDOMEMBRANOUS COLITIS [None]
